FAERS Safety Report 17094770 (Version 2)
Quarter: 2019Q4

REPORT INFORMATION
  Report Type: Spontaneous
  Country: RU (occurrence: RU)
  Receive Date: 20191130
  Receipt Date: 20191213
  Transmission Date: 20200122
  Serious: Yes (Hospitalization, Other)
  Sender: FDA-Public Use
  Company Number: RU-AMGEN-RUSSP2019198083

PATIENT
  Age: 25 Year
  Sex: Female

DRUGS (1)
  1. BLINATUMOMAB [Suspect]
     Active Substance: BLINATUMOMAB
     Indication: ACUTE LYMPHOCYTIC LEUKAEMIA RECURRENT
     Dosage: 9 MICROGRAM/KILOGRAM
     Route: 042
     Dates: start: 20160120

REACTIONS (3)
  - Leukaemic infiltration extramedullary [Unknown]
  - Cytokine release syndrome [Recovered/Resolved]
  - Minimal residual disease [Unknown]

NARRATIVE: CASE EVENT DATE: 20160121
